FAERS Safety Report 8307514-2 (Version None)
Quarter: 2012Q2

REPORT INFORMATION
  Report Type: 
  Country: None (occurrence: None)
  Receive Date: 20120424
  Receipt Date: 20120416
  Transmission Date: 20120825
  Serious: Yes (Hospitalization)
  Sender: FDA-Public Use
  Company Number: FR-TEVA-334532ISR

PATIENT
  Sex: Female

DRUGS (4)
  1. EUPRESSYL [Concomitant]
     Route: 048
  2. PRAZOSIN HCL [Concomitant]
     Route: 048
  3. CLARITHROMYCIN [Suspect]
     Indication: BRONCHITIS
     Route: 048
     Dates: start: 20111227, end: 20120102
  4. FLUTICASONE PROPIONATE/SALMETEROL [Concomitant]
     Route: 055

REACTIONS (8)
  - PULMONARY TOXICITY [None]
  - SYSTEMIC INFLAMMATORY RESPONSE SYNDROME [None]
  - ASTHENIA [None]
  - HYPERSENSITIVITY [None]
  - EOSINOPHILIA [None]
  - PYREXIA [None]
  - CYTOLYTIC HEPATITIS [None]
  - ARTHRALGIA [None]
